FAERS Safety Report 8847127 (Version 1)
Quarter: 2012Q4

REPORT INFORMATION
  Report Type: Spontaneous
  Country: US (occurrence: None)
  Receive Date: 20121017
  Receipt Date: 20121017
  Transmission Date: 20130627
  Serious: No
  Sender: FDA-Public Use
  Company Number: None

PATIENT
  Age: 38 Year
  Sex: Male

DRUGS (1)
  1. CERTOLIZUMAB [Suspect]
     Indication: CROHN^S DISEASE
     Dates: start: 20120411, end: 20120720

REACTIONS (5)
  - Herpes oesophagitis [None]
  - Pyrexia [None]
  - Diarrhoea [None]
  - Hypotension [None]
  - Chills [None]
